FAERS Safety Report 19885763 (Version 3)
Quarter: 2022Q3

REPORT INFORMATION
  Report Type: Other
  Country: SK (occurrence: SK)
  Receive Date: 20210927
  Receipt Date: 20220908
  Transmission Date: 20221026
  Serious: Yes (Life-Threatening, Hospitalization, Disabling, Other)
  Sender: FDA-Public Use
  Company Number: SK-BEH-2019106699

PATIENT
  Sex: Female

DRUGS (37)
  1. POTASSIUM CHLORIDE [Suspect]
     Active Substance: POTASSIUM CHLORIDE
     Indication: Product used for unknown indication
     Dosage: UNK (START DATE: 14 MAR 2018)
     Route: 064
  2. HYDROCORTISONE [Suspect]
     Active Substance: HYDROCORTISONE
     Indication: Product used for unknown indication
     Dosage: UNK (START DATE: 03 MAR 2018 STOP DATE: 09 MAR 2018)
     Route: 064
  3. PREDNISOLONE [Suspect]
     Active Substance: PREDNISOLONE
     Indication: Product used for unknown indication
     Dosage: UNK (START DATE: 22 FEB 2018 STOP DATE: 27 FEB 2018)
     Route: 064
  4. PREDNISOLONE [Suspect]
     Active Substance: PREDNISOLONE
     Dosage: UNK (START DATE: 09 MAY 2018)
     Route: 064
  5. CHOLECALCIFEROL [Suspect]
     Active Substance: CHOLECALCIFEROL
     Indication: Product used for unknown indication
     Dosage: UNK (START DATE: 22 FEB 2018)
     Route: 064
  6. OMEPRAZOLE [Suspect]
     Active Substance: OMEPRAZOLE
     Indication: Product used for unknown indication
     Dosage: UNK (START DATE: 22 FEB 2018)
     Route: 064
  7. DEXAMETHASONE [Suspect]
     Active Substance: DEXAMETHASONE
     Indication: Product used for unknown indication
     Dosage: UNK (START DATE: 28 FEB 2018 STOP DATE: 02 MAR 2018)
     Route: 064
  8. DEXAMETHASONE [Suspect]
     Active Substance: DEXAMETHASONE
     Dosage: UNK (START DATE: 09 MAR 2018 TOP DATE: 04 MAY 2019)
     Route: 064
  9. ETHAMSYLATE [Suspect]
     Active Substance: ETHAMSYLATE
     Indication: Product used for unknown indication
     Dosage: UNK (START DATE: 22 FEB 2018 STOP DATE: 13 APR 2018)
     Route: 064
  10. FLEBOGAMMA DIF [Suspect]
     Active Substance: HUMAN IMMUNOGLOBULIN G
     Indication: Product used for unknown indication
     Dosage: UNK
     Route: 064
  11. FLEBOGAMMA DIF [Suspect]
     Active Substance: HUMAN IMMUNOGLOBULIN G
     Dosage: UNK
     Route: 064
  12. FLEBOGAMMA DIF [Suspect]
     Active Substance: HUMAN IMMUNOGLOBULIN G
     Dosage: UNK (START DATE: 23 APR 2018 STOP DATE: 25 APR 2018)
     Route: 064
  13. CEFAZOLIN SODIUM [Suspect]
     Active Substance: CEFAZOLIN SODIUM
     Indication: Product used for unknown indication
     Dosage: UNK (START DATE: 01 MAY 2018 STOP DATE: 11 MAY 2018)
     Route: 064
  14. VITAMIN B COMPLEX [Suspect]
     Active Substance: CYANOCOBALAMIN\DEXPANTHENOL\NIACINAMIDE\PYRIDOXINE HYDROCHLORIDE\RIBOFLAVIN 5^-PHOSPHATE SODIUM\THIA
     Indication: Product used for unknown indication
     Dosage: UNK (START DATE: 26 MAR 2018)
     Route: 064
  15. MAGNESIUM LACTATE [Suspect]
     Active Substance: MAGNESIUM LACTATE
     Indication: Product used for unknown indication
     Dosage: UNK (START DATE: 21 MAR 2018 STOP DATE: 05 APR 2018)
     Route: 064
  16. HYDROXYCHLOROQUINE [Suspect]
     Active Substance: HYDROXYCHLOROQUINE
     Indication: Product used for unknown indication
     Dosage: UNK (START DATE: 22 FEB 2018)
     Route: 064
  17. PENICILLIN G SODIUM [Suspect]
     Active Substance: PENICILLIN G SODIUM
     Indication: Product used for unknown indication
     Dosage: UNK (START DATE: 24 FEB 2018 STOP DATE: 08 MAR 2018)
     Route: 064
  18. FLUCONAZOLE [Suspect]
     Active Substance: FLUCONAZOLE
     Indication: Product used for unknown indication
     Dosage: UNK (START DATE: 27 FEB 2018 STOP DATE: 20 MAR 2018)
     Route: 064
  19. BISULEPIN [Suspect]
     Active Substance: BISULEPIN
     Indication: Product used for unknown indication
     Dosage: UNK (START DATE: 27 MAR 2018 STOP DATE: 27 MAR 2018)
     Route: 064
  20. NADROPARIN [Suspect]
     Active Substance: NADROPARIN
     Indication: Product used for unknown indication
     Dosage: UNK (START DATE: 22 FEB 2018 STOP DATE: 26 FEB 2018)
     Route: 064
  21. CEFIXIME [Suspect]
     Active Substance: CEFIXIME
     Indication: Product used for unknown indication
     Dosage: UNK (START DATE: 01 MAY 2018 STOP DATE: 14 MAY 2018)
     Route: 064
  22. CEFIXIME [Suspect]
     Active Substance: CEFIXIME
     Dosage: UNK
     Route: 064
  23. CALCIUM CARBONATE [Suspect]
     Active Substance: CALCIUM CARBONATE
     Indication: Product used for unknown indication
     Dosage: UNK (START DATE: 23 FEB 2018)
     Route: 064
  24. PRIVIGEN [Suspect]
     Active Substance: HUMAN IMMUNOGLOBULIN G
     Indication: Product used for unknown indication
     Dosage: UNK
     Route: 064
  25. PRIVIGEN [Suspect]
     Active Substance: HUMAN IMMUNOGLOBULIN G
     Dosage: UNK
     Route: 064
  26. BISOPROLOL FUMARATE [Suspect]
     Active Substance: BISOPROLOL FUMARATE
     Indication: Product used for unknown indication
     Dosage: UNK (START DATE: 23 FEB 2018 STOP DATE: 27 MAR 2018)
     Route: 064
  27. ORNIDAZOLE [Suspect]
     Active Substance: ORNIDAZOLE
     Indication: Product used for unknown indication
     Dosage: UNK (START DATE: 01 MAY 2018 STOP DATE: 10 MAY 2018)
     Route: 064
  28. FOLIC ACID [Suspect]
     Active Substance: FOLIC ACID
     Indication: Product used for unknown indication
     Dosage: UNK (START DATE: 22 FEB 2018)
     Route: 064
  29. METHYLPREDNISOLONE [Suspect]
     Active Substance: METHYLPREDNISOLONE
     Indication: Product used for unknown indication
     Dosage: UNK (START DATE: 21 FEB 2018 STOP DATE: 23 FEB 2018)
     Route: 064
  30. METHYLPREDNISOLONE [Suspect]
     Active Substance: METHYLPREDNISOLONE
     Dosage: UNK (START DATE: 05 MAY 2018 STOP DATE: 09 MAY 218)
     Route: 064
  31. AMINOMETHYLBENZOIC ACID [Suspect]
     Active Substance: AMINOMETHYLBENZOIC ACID
     Indication: Product used for unknown indication
     Dosage: UNK (START DATE: 27 FEB 2018 STOP DATE: 11 MAR 2018)
     Route: 064
  32. CEFOTAXIME [Suspect]
     Active Substance: CEFOTAXIME SODIUM
     Indication: Product used for unknown indication
     Dosage: UNK, (START DATE: 19 MAR 2018 AND STOP DATE: 29 MAR 2018)
     Route: 064
  33. CEFOTAXIME [Suspect]
     Active Substance: CEFOTAXIME SODIUM
     Dosage: UNK (START DATE: 12 APR 2018 STOP DATE: 27 APR 2018)
     Route: 064
  34. METOPROLOL TARTRATE [Suspect]
     Active Substance: METOPROLOL TARTRATE
     Indication: Product used for unknown indication
     Dosage: UNK (START DATE: 11 MAY 2018)
     Route: 064
  35. ALBUMIN (HUMAN) [Suspect]
     Active Substance: ALBUMIN HUMAN
     Indication: Product used for unknown indication
     Dosage: UNK (START DATE: 27 MAR 2018 STOP DATE: 29 MAR 2018)
     Route: 064
  36. ACETAMINOPHEN [Suspect]
     Active Substance: ACETAMINOPHEN
     Indication: Product used for unknown indication
     Dosage: UNK (START DATE: 22 FEB 2018 STOP DATE: 03 APR 2018)
     Route: 064
  37. VITAMIN K [Suspect]
     Active Substance: PHYTONADIONE
     Indication: Product used for unknown indication
     Dosage: UNK (START DATE: 27 FEB 2018 STOP DATE: 09 MAR 2018)
     Route: 064

REACTIONS (3)
  - Foetal growth restriction [Recovered/Resolved]
  - Premature baby [Recovered/Resolved]
  - Foetal exposure during pregnancy [Unknown]

NARRATIVE: CASE EVENT DATE: 20180222
